FAERS Safety Report 23858910 (Version 1)
Quarter: 2024Q2

REPORT INFORMATION
  Report Type: Report from Study
  Country: PH (occurrence: PH)
  Receive Date: 20240515
  Receipt Date: 20240515
  Transmission Date: 20240716
  Serious: Yes (Hospitalization)
  Sender: FDA-Public Use
  Company Number: PH-OTSUKA-2024_008962

PATIENT
  Sex: Female

DRUGS (1)
  1. TOLVAPTAN [Suspect]
     Active Substance: TOLVAPTAN
     Indication: Product used for unknown indication
     Dosage: 1 DF, QOD (ONE TABLET EVERY OTHER DAY)
     Route: 065

REACTIONS (2)
  - Swelling [Unknown]
  - Inappropriate schedule of product administration [Unknown]
